FAERS Safety Report 18240892 (Version 1)
Quarter: 2020Q3

REPORT INFORMATION
  Report Type: Spontaneous
  Country: US (occurrence: US)
  Receive Date: 20200905
  Receipt Date: 20200905
  Transmission Date: 20201103
  Serious: Yes (Hospitalization, Disabling)
  Sender: FDA-Public Use
  Company Number: None

PATIENT
  Age: 68 Year
  Sex: Female
  Weight: 68.85 kg

DRUGS (3)
  1. CALCIUM CARBONATE. [Concomitant]
     Active Substance: CALCIUM CARBONATE
  2. VITAMIN D3 [Concomitant]
     Active Substance: CHOLECALCIFEROL
  3. PRILOSEC OTC [Suspect]
     Active Substance: OMEPRAZOLE MAGNESIUM
     Indication: GASTROOESOPHAGEAL REFLUX DISEASE
     Route: 048
     Dates: start: 20200409, end: 20200415

REACTIONS (9)
  - Weight decreased [None]
  - Haemorrhage [None]
  - Renal impairment [None]
  - Hypotension [None]
  - Vomiting [None]
  - Heart rate irregular [None]
  - Ureteric obstruction [None]
  - Dialysis [None]
  - Tubulointerstitial nephritis [None]

NARRATIVE: CASE EVENT DATE: 20200506
